FAERS Safety Report 8182113-4 (Version None)
Quarter: 2012Q1

REPORT INFORMATION
  Report Type: 
  Country: None (occurrence: None)
  Receive Date: 20120302
  Receipt Date: 20120224
  Transmission Date: 20120608
  Serious: Yes (Other)
  Sender: FDA-Public Use
  Company Number: PHEH2012US004661

PATIENT
  Sex: Female

DRUGS (4)
  1. CARDAVAL [Concomitant]
  2. DIOVAN HCT [Suspect]
     Dosage: 1 DF, QD (MORNING)
  3. HYDRALAZINE HCL [Concomitant]
  4. DIOVAN [Suspect]
     Dosage: 160 MG, QD (EVENING)

REACTIONS (4)
  - DIABETES MELLITUS [None]
  - GAIT DISTURBANCE [None]
  - CEREBROVASCULAR ACCIDENT [None]
  - ARTHRITIS [None]
